FAERS Safety Report 8750289 (Version 2)
Quarter: 2012Q4

REPORT INFORMATION
  Report Type: 
  Country: US (occurrence: None)
  Receive Date: 20120809
  Receipt Date: 20120828
  Transmission Date: 20130627
  Serious: Yes (Hospitalization)
  Sender: FDA-Public Use
  Company Number: AUR-APL-2012-03398

PATIENT
  Age: 71 Year
  Sex: Male

DRUGS (2)
  1. DONEPEZIL HYDROCHLORIDE [Suspect]
     Indication: DRUG USE FOR UNKNOWN INDICATION
  2. QUETIAPINE FUMARATE [Concomitant]

REACTIONS (6)
  - Euphoric mood [None]
  - Mania [None]
  - Speech disorder [None]
  - Psychomotor hyperactivity [None]
  - Sleep disorder [None]
  - Psychomotor hyperactivity [None]
